FAERS Safety Report 20733986 (Version 3)
Quarter: 2022Q2

REPORT INFORMATION
  Report Type: Spontaneous
  Country: CA (occurrence: CA)
  Receive Date: 20220421
  Receipt Date: 20220621
  Transmission Date: 20220721
  Serious: Yes (Other)
  Sender: FDA-Public Use
  Company Number: CA-CELLTRION INC.-2021CA018654

PATIENT

DRUGS (5)
  1. INFLECTRA [Suspect]
     Active Substance: INFLIXIMAB-DYYB
     Indication: Colitis ulcerative
     Dosage: UNKNOWN DOSE, WEEK 0 RECEIVED IN HOSPITAL
     Route: 041
     Dates: start: 20211124, end: 20211124
  2. INFLECTRA [Suspect]
     Active Substance: INFLIXIMAB-DYYB
     Dosage: AT WEEK 2 AND 6 THEN Q 8 WEEKS
     Route: 042
     Dates: start: 20211220
  3. INFLECTRA [Suspect]
     Active Substance: INFLIXIMAB-DYYB
     Dosage: AT WEEK 2 AND 6 THEN Q 8 WEEKS
     Route: 042
     Dates: start: 20220211
  4. INFLECTRA [Suspect]
     Active Substance: INFLIXIMAB-DYYB
     Dosage: AT WEEK 2 AND 6 THEN Q 8 WEEKS
     Route: 042
     Dates: start: 20220408
  5. INFLECTRA [Suspect]
     Active Substance: INFLIXIMAB-DYYB
     Dosage: AT WEEK 2 AND 6 THEN Q 8 WEEKS
     Route: 042
     Dates: start: 20220610

REACTIONS (14)
  - Pruritus [Recovering/Resolving]
  - Vision blurred [Recovering/Resolving]
  - Dizziness [Recovering/Resolving]
  - Feeling hot [Recovering/Resolving]
  - Chills [Recovered/Resolved]
  - Paraesthesia [Recovering/Resolving]
  - Hypoaesthesia [Recovering/Resolving]
  - Feeling cold [Recovered/Resolved]
  - Body temperature decreased [Not Recovered/Not Resolved]
  - Off label use [Unknown]
  - Inappropriate schedule of product administration [Unknown]
  - COVID-19 [Unknown]
  - Blood pressure fluctuation [Recovered/Resolved]
  - Heart rate decreased [Not Recovered/Not Resolved]

NARRATIVE: CASE EVENT DATE: 20211220
